FAERS Safety Report 6338767-8 (Version None)
Quarter: 2009Q3

REPORT INFORMATION
  Report Type: 
  Country: None (occurrence: None)
  Receive Date: 20090903
  Receipt Date: 20090827
  Transmission Date: 20100115
  Serious: Yes (Other)
  Sender: FDA-Public Use
  Company Number: US-JNJFOC-20090900195

PATIENT
  Age: 15 Year
  Sex: Male
  Weight: 53.07 kg

DRUGS (2)
  1. CONCERTA [Suspect]
     Indication: ATTENTION DEFICIT/HYPERACTIVITY DISORDER
     Route: 048
  2. ZOMIG [Concomitant]
     Indication: MIGRAINE

REACTIONS (4)
  - CRYING [None]
  - MIGRAINE [None]
  - SUICIDAL IDEATION [None]
  - VOMITING [None]
